FAERS Safety Report 24758029 (Version 2)
Quarter: 2025Q1

REPORT INFORMATION
  Report Type: Spontaneous
  Country: US (occurrence: US)
  Receive Date: 20241220
  Receipt Date: 20250327
  Transmission Date: 20250409
  Serious: No
  Sender: UCB
  Company Number: US-UCBSA-2024047231

PATIENT
  Sex: Female
  Weight: 121.09 kg

DRUGS (1)
  1. BIMZELX [Suspect]
     Active Substance: BIMEKIZUMAB-BKZX
     Indication: Psoriasis
     Dosage: 320 MILLIGRAM, EV 4 WEEKS
     Route: 058
     Dates: start: 202408

REACTIONS (4)
  - Fungal infection [Unknown]
  - Candida infection [Unknown]
  - Tongue ulceration [Unknown]
  - Ear pain [Unknown]

NARRATIVE: CASE EVENT DATE: 20240101
